FAERS Safety Report 9355381 (Version 2)
Quarter: 2013Q2

REPORT INFORMATION
  Report Type: Report from Study
  Country: MY (occurrence: MY)
  Receive Date: 20130619
  Receipt Date: 20130627
  Transmission Date: 20140414
  Serious: Yes (Death, Hospitalization)
  Sender: FDA-Public Use
  Company Number: MY-JNJFOC-20130601359

PATIENT
  Sex: Male
  Weight: 56 kg

DRUGS (1)
  1. ZYTIGA [Suspect]
     Indication: PROSTATE CANCER
     Route: 048
     Dates: start: 20130305

REACTIONS (2)
  - Pneumonia aspiration [Fatal]
  - Sepsis [Fatal]
